FAERS Safety Report 4535651-7 (Version None)
Quarter: 2004Q4

REPORT INFORMATION
  Report Type: 
  Country: None (occurrence: None)
  Receive Date: 20041222
  Receipt Date: 20041222
  Transmission Date: 20050328
  Serious: Yes (Death)
  Sender: FDA-Public Use
  Company Number: None

PATIENT
  Age: 70 Year
  Sex: Male
  Weight: 95.2554 kg

DRUGS (3)
  1. ALIMTA [Suspect]
     Indication: MESOTHELIOMA
     Dosage: 1000 MG IV [ONLY 1 DOSE]
     Route: 042
     Dates: start: 20040720
  2. B-12 [Concomitant]
  3. FOLIC ACID [Concomitant]

REACTIONS (2)
  - BONE MARROW DISORDER [None]
  - PAIN [None]
